FAERS Safety Report 24584463 (Version 1)
Quarter: 2024Q4

REPORT INFORMATION
  Report Type: Spontaneous
  Country: CN (occurrence: CN)
  Receive Date: 20241106
  Receipt Date: 20241106
  Transmission Date: 20250115
  Serious: Yes (Other)
  Sender: PFIZER
  Company Number: CN-PFIZER INC-PV202400142581

PATIENT
  Age: 54 Year
  Sex: Male

DRUGS (3)
  1. LINEZOLID [Suspect]
     Active Substance: LINEZOLID
     Indication: Pneumonia
     Dosage: 0.6 G, 2X/DAY
     Route: 048
     Dates: start: 20241011, end: 20241013
  2. IMIPENEM AND CILASTATIN SODIUM [Suspect]
     Active Substance: CILASTATIN SODIUM\IMIPENEM
     Indication: Infection
     Dosage: 1 G, 3X/DAY
     Route: 041
     Dates: start: 20241008, end: 20241013
  3. DEXTROSE [Concomitant]
     Active Substance: DEXTROSE MONOHYDRATE
     Indication: Vehicle solution use
     Dosage: 100 ML, 3X/DAY
     Route: 041
     Dates: start: 20241008, end: 20241013

REACTIONS (5)
  - Platelet count decreased [Recovering/Resolving]
  - Diarrhoea [Recovering/Resolving]
  - Functional gastrointestinal disorder [Recovering/Resolving]
  - Anal incontinence [Unknown]
  - Dysbiosis [Not Recovered/Not Resolved]

NARRATIVE: CASE EVENT DATE: 20241001
